FAERS Safety Report 5445238-X (Version None)
Quarter: 2007Q3

REPORT INFORMATION
  Report Type: 
  Country: None (occurrence: None)
  Receive Date: 20070731
  Receipt Date: 20070618
  Transmission Date: 20080115
  Serious: No
  Sender: FDA-Public Use
  Company Number: US200706004167

PATIENT
  Age: 54 Year
  Sex: Female
  Weight: 73.5 kg

DRUGS (11)
  1. BYETTA [Suspect]
     Indication: TYPE 2 DIABETES MELLITUS
     Dosage: 10 UG, 3/D, SUBCUTANEOUS; 10 UG, 2/D, SUBCTUANEOUS
     Route: 058
     Dates: start: 20070201, end: 20070401
  2. BYETTA [Suspect]
     Indication: TYPE 2 DIABETES MELLITUS
     Dosage: 10 UG, 3/D, SUBCUTANEOUS; 10 UG, 2/D, SUBCTUANEOUS
     Route: 058
     Dates: start: 20070401
  3. NOVOLOG MIX 70/30 [Concomitant]
  4. GLUCOPHAGE [Concomitant]
  5. NEXIUM [Concomitant]
  6. PAXIL [Concomitant]
  7. XANAX [Concomitant]
  8. OSCAL (CALCIUM CARBONATE) [Concomitant]
  9. CALCITRIOL [Concomitant]
  10. SYNTHROID [Concomitant]
  11. ARIMIDEX (ANASTROXOLE) [Concomitant]

REACTIONS (8)
  - ACCIDENTAL OVERDOSE [None]
  - BLOOD GLUCOSE INCREASED [None]
  - DYSPEPSIA [None]
  - ERUCTATION [None]
  - INCORRECT DOSE ADMINISTERED [None]
  - URINARY TRACT INFECTION [None]
  - VOMITING [None]
  - WEIGHT DECREASED [None]
